FAERS Safety Report 15532604 (Version 5)
Quarter: 2022Q4

REPORT INFORMATION
  Report Type: Spontaneous
  Country: US (occurrence: None)
  Receive Date: 20181019
  Receipt Date: 20221209
  Transmission Date: 20230112
  Serious: Yes (Other)
  Sender: FDA-Public Use
  Company Number: 2018SF35144

PATIENT
  Age: 54 Year
  Sex: Female
  Weight: 53.5 kg

DRUGS (41)
  1. NEXIUM [Suspect]
     Active Substance: ESOMEPRAZOLE MAGNESIUM
     Indication: Gastrooesophageal reflux disease
     Route: 048
     Dates: start: 2004, end: 2011
  2. OMEPRAZOLE [Suspect]
     Active Substance: OMEPRAZOLE
     Indication: Gastrooesophageal reflux disease
     Dosage: GENERIC
     Route: 065
     Dates: start: 201401, end: 201605
  3. PREVACID [Suspect]
     Active Substance: LANSOPRAZOLE
     Indication: Gastrooesophageal reflux disease
     Route: 065
     Dates: start: 20041031
  4. PREVACID [Suspect]
     Active Substance: LANSOPRAZOLE
     Indication: Gastrooesophageal reflux disease
     Route: 065
     Dates: start: 200411, end: 200503
  5. ACIPHEX [Suspect]
     Active Substance: RABEPRAZOLE SODIUM
     Indication: Gastrooesophageal reflux disease
     Route: 065
     Dates: start: 201108, end: 201208
  6. CITALOPRAM [Concomitant]
     Active Substance: CITALOPRAM HYDROBROMIDE
  7. RANITIDINE [Concomitant]
     Active Substance: RANITIDINE
  8. LISINOPRIL [Concomitant]
     Active Substance: LISINOPRIL
  9. ACETAMINOPHEN [Concomitant]
     Active Substance: ACETAMINOPHEN
  10. BENADRYL [Concomitant]
     Active Substance: DIPHENHYDRAMINE HYDROCHLORIDE
  11. CLONAZEPAM [Concomitant]
     Active Substance: CLONAZEPAM
  12. ENALAPRIL [Concomitant]
     Active Substance: ENALAPRIL
  13. ALPRAZOLAM [Concomitant]
     Active Substance: ALPRAZOLAM
  14. LYRICA [Concomitant]
     Active Substance: PREGABALIN
  15. PREDNISONE [Concomitant]
     Active Substance: PREDNISONE
  16. LEVOTHYROXINE [Concomitant]
     Active Substance: LEVOTHYROXINE
  17. CYCLOBENZAPRINE [Concomitant]
     Active Substance: CYCLOBENZAPRINE
  18. AMBIEN [Concomitant]
     Active Substance: ZOLPIDEM TARTRATE
  19. ENBREL [Concomitant]
     Active Substance: ETANERCEPT
  20. FLUOXETINE HYDROCHLORIDE [Concomitant]
     Active Substance: FLUOXETINE HYDROCHLORIDE
  21. TIZANIDINE HYDROCHLORIDE [Concomitant]
     Active Substance: TIZANIDINE HYDROCHLORIDE
  22. TOPIRAMATE [Concomitant]
     Active Substance: TOPIRAMATE
  23. AMLODIPINE [Concomitant]
     Active Substance: AMLODIPINE BESYLATE
  24. MAXZIDE [Concomitant]
     Active Substance: HYDROCHLOROTHIAZIDE\TRIAMTERENE
  25. CYMBALTA [Concomitant]
     Active Substance: DULOXETINE HYDROCHLORIDE
  26. IMITREX [Concomitant]
     Active Substance: SUMATRIPTAN SUCCINATE
  27. WELLBUTRIN [Concomitant]
     Active Substance: BUPROPION HYDROCHLORIDE
  28. ROPINIROLE HYDROCHLORIDE [Concomitant]
     Active Substance: ROPINIROLE HYDROCHLORIDE
  29. METHOTREXATE [Concomitant]
     Active Substance: METHOTREXATE
  30. OXYCODONE HYDROCHLORIDE [Concomitant]
     Active Substance: OXYCODONE HYDROCHLORIDE
  31. METHADONE [Concomitant]
     Active Substance: METHADONE HYDROCHLORIDE
  32. MORPHINE SULFATE [Concomitant]
     Active Substance: MORPHINE SULFATE
  33. GABAPENTIN [Concomitant]
     Active Substance: GABAPENTIN
  34. METHADONE [Concomitant]
     Active Substance: METHADONE HYDROCHLORIDE
  35. SCOPOLAMINE [Concomitant]
     Active Substance: SCOPOLAMINE
  36. TOLMETIN [Concomitant]
     Active Substance: TOLMETIN
  37. ALENDRONATE [Concomitant]
     Active Substance: ALENDRONATE SODIUM
  38. CIMZIA [Concomitant]
     Active Substance: CERTOLIZUMAB PEGOL
  39. SYNTHROID [Concomitant]
     Active Substance: LEVOTHYROXINE SODIUM
  40. NYSTATIN [Concomitant]
     Active Substance: NYSTATIN
  41. LIDOCAINE [Concomitant]
     Active Substance: LIDOCAINE

REACTIONS (6)
  - Chronic kidney disease [Not Recovered/Not Resolved]
  - Nephrogenic anaemia [Unknown]
  - Acute kidney injury [Unknown]
  - Renal tubular necrosis [Unknown]
  - Tubulointerstitial nephritis [Unknown]
  - Renal failure [Unknown]

NARRATIVE: CASE EVENT DATE: 20110101
